FAERS Safety Report 10201922 (Version 4)
Quarter: 2014Q2

REPORT INFORMATION
  Report Type: Spontaneous
  Country: FR (occurrence: FR)
  Receive Date: 20140528
  Receipt Date: 20140605
  Transmission Date: 20141212
  Serious: Yes (Hospitalization, Other)
  Sender: FDA-Public Use
  Company Number: FR-VERTEX PHARMACEUTICALS INC-2013-009623

PATIENT
  Age: 56 Year
  Sex: Female
  Weight: 80 kg

DRUGS (19)
  1. INCIVO [Suspect]
     Indication: HEPATITIS C
     Dosage: 750 MG, TID
     Route: 065
     Dates: start: 20111010, end: 20120109
  2. RIBAVIRIN [Suspect]
     Indication: HEPATITIS C
     Dosage: DOSAGE FORM: UNSPECIFIED
     Route: 065
     Dates: start: 20111010, end: 20120913
  3. VIRAFERON [Suspect]
     Indication: HEPATITIS C
     Dosage: DOSAGE FORM: UNSPECIFIED, 150 MCG (0.45 ML)
     Route: 065
     Dates: start: 20111010
  4. NEORECORMON [Concomitant]
     Indication: ANAEMIA
     Dosage: TWO VIALS
     Route: 058
     Dates: start: 2012
  5. NEORECORMON [Concomitant]
     Dosage: TWO VIALS
     Route: 058
     Dates: start: 20111010
  6. LERCAN [Concomitant]
     Indication: HYPERTENSION
     Dosage: DOSAGE FORM: UNSPECIFIED
     Route: 065
     Dates: start: 1995
  7. LEVOTHYROX [Concomitant]
     Indication: HYPOTHYROIDISM
     Dosage: DOSAGE FORM: UNSPECIFIED, 62.5 MCG
     Route: 065
     Dates: start: 1990
  8. BROMAZEPAM [Concomitant]
     Indication: ANXIETY
     Dosage: DOSAGE FORM: UNSPECIFIED
     Route: 065
     Dates: start: 1999
  9. ZOPICLONE [Concomitant]
     Indication: INSOMNIA
     Dosage: DOSAGE FORM: UNSPECIFIED
     Route: 065
     Dates: start: 1995
  10. AVLOCARDYL [Concomitant]
     Indication: VARICES OESOPHAGEAL
     Dosage: DOSAGE FORM: UNSPECIFIED
     Route: 065
     Dates: start: 200911
  11. PARIET [Concomitant]
     Indication: GASTRITIS
     Dosage: DOSAGE FORM: UNSPECIFIED
     Route: 065
     Dates: start: 2009
  12. PARIET [Concomitant]
     Indication: VARICES OESOPHAGEAL
  13. ALDACTONE [Concomitant]
     Indication: OEDEMA PERIPHERAL
     Dosage: DOSAGE FORM: UNSPECIFIED
     Route: 065
     Dates: start: 20111107
  14. ALDACTONE [Concomitant]
     Dosage: DOSAGE FORM: UNSPECIFIED, 1.5 DOSE PER DAY
     Route: 065
     Dates: start: 201111
  15. LASILIX [Concomitant]
     Indication: OEDEMA PERIPHERAL
     Dosage: DOSAGE FORM: UNSPECIFIED, 20.5 UNITS UNSPECIFIED
     Route: 065
     Dates: start: 20111107
  16. LASILIX [Concomitant]
     Dosage: DOSAGE FORM: UNSPECIFIED, 50 ONCE
     Route: 065
     Dates: start: 201111
  17. PEGASYS [Concomitant]
     Indication: HEPATITIS C
     Dosage: DOSAGE FORM: UNSPECIFIED, 180 MCG
     Route: 065
     Dates: start: 20111010, end: 20120913
  18. LEVEMIR [Concomitant]
     Indication: DIABETES MELLITUS
     Dosage: DOSAGE FORM: UNSPECIFIED
     Route: 065
     Dates: start: 201007
  19. PROPRANOLOL [Concomitant]
     Indication: PRODUCT USED FOR UNKNOWN INDICATION
     Dosage: DOSAGE FORM: UNKNOWN
     Route: 065
     Dates: start: 2009

REACTIONS (7)
  - Dyspnoea [Recovering/Resolving]
  - General physical health deterioration [Recovering/Resolving]
  - Oedema [Unknown]
  - Femur fracture [Not Recovered/Not Resolved]
  - Weight increased [Recovering/Resolving]
  - Fall [Recovering/Resolving]
  - Anaemia [Recovered/Resolved]
